FAERS Safety Report 4816161-6 (Version None)
Quarter: 2005Q4

REPORT INFORMATION
  Report Type: 
  Country: None (occurrence: None)
  Receive Date: 20051026
  Receipt Date: 20051011
  Transmission Date: 20060501
  Serious: Yes (Hospitalization, Other)
  Sender: FDA-Public Use
  Company Number: USA050187538

PATIENT
  Age: 86 Year
  Sex: Female

DRUGS (12)
  1. FORTEO [Suspect]
     Indication: FRACTURE
     Dosage: 20 UG/1 DAY
     Dates: start: 20040801
  2. FORTEO [Suspect]
     Indication: OSTEOPOROSIS
     Dosage: 20 UG/1 DAY
     Dates: start: 20040801
  3. FORTEO [Suspect]
     Indication: PROPHYLAXIS
     Dosage: 20 UG/1 DAY
     Dates: start: 20040801
  4. EVISTA [Suspect]
     Indication: OSTEOPENIA
     Dates: start: 19981012
  5. VERELAN (VERAPAMIL HYDROCHLORIDE) [Concomitant]
  6. PRILOSEC [Concomitant]
  7. DETROL [Concomitant]
  8. CLARINEX [Concomitant]
  9. METOPROLOL [Concomitant]
  10. LEVOXINE (LEVOTHYROXINE SODIUM) [Concomitant]
  11. CALCIUM GLUCONATE [Concomitant]
  12. VITAMIN D [Concomitant]

REACTIONS (36)
  - ARTHROPATHY [None]
  - ARTHROPOD BITE [None]
  - ASTHENIA [None]
  - B-CELL LYMPHOMA [None]
  - BACK PAIN [None]
  - BLINDNESS [None]
  - BONE DENSITY DECREASED [None]
  - BONE PAIN [None]
  - BRONCHIAL DISORDER [None]
  - BUNION [None]
  - COLECTOMY [None]
  - CONDITION AGGRAVATED [None]
  - COUGH [None]
  - DYSPHONIA [None]
  - ERYTHEMA [None]
  - EYE HAEMORRHAGE [None]
  - FALL [None]
  - INFLUENZA [None]
  - INJECTION SITE PAIN [None]
  - LYMPHOMA [None]
  - LYMPHOPROLIFERATIVE DISORDER [None]
  - MEDICAL DEVICE COMPLICATION [None]
  - MUSCULOSKELETAL STIFFNESS [None]
  - N-TELOPEPTIDE URINE INCREASED [None]
  - NASOPHARYNGITIS [None]
  - PAIN [None]
  - PAIN IN EXTREMITY [None]
  - PHARMACEUTICAL PRODUCT COMPLAINT [None]
  - POOR PERIPHERAL CIRCULATION [None]
  - POSTURE ABNORMAL [None]
  - PRURITUS [None]
  - RASH [None]
  - SMALL INTESTINAL RESECTION [None]
  - SPINAL OSTEOARTHRITIS [None]
  - TREMOR [None]
  - WEIGHT DECREASED [None]
